FAERS Safety Report 13813886 (Version 2)
Quarter: 2017Q3

REPORT INFORMATION
  Report Type: Spontaneous
  Country: US (occurrence: US)
  Receive Date: 20170731
  Receipt Date: 20170801
  Transmission Date: 20171127
  Serious: No
  Sender: FDA-Public Use
  Company Number: US-PFIZER INC-2017329181

PATIENT
  Age: 58 Year
  Sex: Female
  Weight: 68.27 kg

DRUGS (5)
  1. LYRICA [Suspect]
     Active Substance: PREGABALIN
     Indication: PERIPHERAL SWELLING
     Dosage: 150 MG, 1X/DAY
     Route: 048
     Dates: start: 20170724
  2. LYRICA [Interacting]
     Active Substance: PREGABALIN
     Indication: MYALGIA
  3. MORPHINE SULFATE. [Interacting]
     Active Substance: MORPHINE SULFATE
     Indication: PAIN
     Dosage: 15 MG, 2X/DAY (CAN TAKE MORE FOR PAIN IF NEEDED)
     Route: 048
  4. LYRICA [Interacting]
     Active Substance: PREGABALIN
     Indication: BACK PAIN
  5. LYRICA [Interacting]
     Active Substance: PREGABALIN
     Indication: GAIT DISTURBANCE

REACTIONS (4)
  - Condition aggravated [Recovering/Resolving]
  - Drug interaction [Not Recovered/Not Resolved]
  - Peripheral swelling [Recovering/Resolving]
  - Muscle tightness [Unknown]

NARRATIVE: CASE EVENT DATE: 20170726
